FAERS Safety Report 25428266 (Version 3)
Quarter: 2025Q4

REPORT INFORMATION
  Report Type: Spontaneous
  Country: TH (occurrence: TH)
  Receive Date: 20250612
  Receipt Date: 20251009
  Transmission Date: 20260118
  Serious: Yes (Hospitalization, Other)
  Sender: MERCK SHARP & DOHME LLC
  Company Number: TH-009507513-2259451

PATIENT
  Age: 68 Year
  Sex: Female

DRUGS (3)
  1. KEYTRUDA [Suspect]
     Active Substance: PEMBROLIZUMAB
     Indication: Metastatic malignant melanoma
     Dosage: 200 MG, IV, Q 3 WEEKS, 20JAN2025, 10FEB2025, 24FEB2025
     Route: 042
     Dates: start: 20250120
  2. KEYTRUDA [Suspect]
     Active Substance: PEMBROLIZUMAB
     Indication: Metastatic malignant melanoma
     Route: 042
     Dates: start: 20250210, end: 20250210
  3. KEYTRUDA [Suspect]
     Active Substance: PEMBROLIZUMAB
     Indication: Metastatic malignant melanoma
     Route: 042
     Dates: start: 20250224, end: 20250224

REACTIONS (4)
  - Malignant neoplasm progression [Not Recovered/Not Resolved]
  - Drug resistance [Not Recovered/Not Resolved]
  - Dizziness [Unknown]
  - Inappropriate schedule of product administration [Unknown]

NARRATIVE: CASE EVENT DATE: 20250101
